FAERS Safety Report 5167214-7 (Version None)
Quarter: 2006Q4

REPORT INFORMATION
  Report Type: 
  Country: None (occurrence: None)
  Receive Date: 20061130
  Receipt Date: 20061117
  Transmission Date: 20070319
  Serious: Yes (Death, Other)
  Sender: FDA-Public Use
  Company Number: 2005076369

PATIENT
  Age: 86 Year
  Sex: Female

DRUGS (4)
  1. UNASYN [Suspect]
     Indication: INFECTION
     Dosage: 6 GRAM, INTRAVENOUS
     Route: 042
     Dates: start: 20050510, end: 20050516
  2. AMINOPHYLLINE [Concomitant]
  3. PREDNISOLONE [Concomitant]
  4. NEOPHAGEN (GLYCYRRHIZINATE POTASSIUM) [Concomitant]

REACTIONS (6)
  - ALANINE AMINOTRANSFERASE INCREASED [None]
  - ASPARTATE AMINOTRANSFERASE INCREASED [None]
  - CARDIAC ARREST [None]
  - DEPRESSED LEVEL OF CONSCIOUSNESS [None]
  - MALAISE [None]
  - RESPIRATORY ARREST [None]
